FAERS Safety Report 12375728 (Version 1)
Quarter: 2016Q2

REPORT INFORMATION
  Report Type: Spontaneous
  Country: US (occurrence: None)
  Receive Date: 20160516
  Receipt Date: 20160516
  Transmission Date: 20160815
  Serious: Yes (Other)
  Sender: FDA-Public Use
  Company Number: None

PATIENT
  Age: 88 Year
  Sex: Female
  Weight: 53.98 kg

DRUGS (4)
  1. MYRBETRIQ [Suspect]
     Active Substance: MIRABEGRON
     Indication: URINARY INCONTINENCE
     Dosage: 8 TABLET(S) ONCE A DAY TAKEN MY MOUTH
     Route: 048
     Dates: start: 20160426, end: 20160503
  2. BACK SUPPORT BRACE [Concomitant]
  3. PESSARY RING [Concomitant]
  4. VITAMIN D [Concomitant]
     Active Substance: CHOLECALCIFEROL

REACTIONS (2)
  - Dizziness [None]
  - Heart rate increased [None]

NARRATIVE: CASE EVENT DATE: 20160503
